FAERS Safety Report 6773635-9 (Version None)
Quarter: 2010Q2

REPORT INFORMATION
  Report Type: 
  Country: None (occurrence: None)
  Receive Date: 20100614
  Receipt Date: 20100526
  Transmission Date: 20101027
  Serious: Yes (Hospitalization)
  Sender: FDA-Public Use
  Company Number: JP-1181999

PATIENT
  Age: 89 Year
  Sex: Male

DRUGS (4)
  1. BSS PLUS [Suspect]
     Indication: CATARACT OPERATION
     Route: 031
     Dates: start: 20091214, end: 20091214
  2. OPEGAN HI (HYALURONATE SODIUM) [Concomitant]
  3. BENOXIL (OXYBUPROCAINE HYDROCHLORIDE) [Concomitant]
  4. MYDRIN P (MYDRIN P) [Concomitant]

REACTIONS (7)
  - ALLERGY TEST POSITIVE [None]
  - CORNEAL DISORDER [None]
  - EYE INFLAMMATION [None]
  - KERATITIS [None]
  - OCULAR HYPERAEMIA [None]
  - POST PROCEDURAL COMPLICATION [None]
  - VISUAL ACUITY REDUCED [None]
